FAERS Safety Report 12780356 (Version 1)
Quarter: 2016Q3

REPORT INFORMATION
  Report Type: Report from Study
  Country: US (occurrence: US)
  Receive Date: 20160926
  Receipt Date: 20160926
  Transmission Date: 20161109
  Serious: Yes (Other)
  Sender: FDA-Public Use
  Company Number: US-BAYER-2016-183145

PATIENT
  Age: 82 Year
  Sex: Female
  Weight: 77.69 kg

DRUGS (2)
  1. ADEMPAS [Suspect]
     Active Substance: RIOCIGUAT
     Indication: PULMONARY ARTERIAL HYPERTENSION
     Dosage: 0.5 MG, TID
     Route: 048
  2. ADEMPAS [Suspect]
     Active Substance: RIOCIGUAT
     Indication: PULMONARY ARTERIAL HYPERTENSION
     Dosage: UNK
     Dates: start: 20160913

REACTIONS (6)
  - Heart rate irregular [None]
  - Tremor [None]
  - Contraindicated product administered [None]
  - Affect lability [None]
  - Heart rate increased [None]
  - Emotional disorder [None]
